FAERS Safety Report 10457996 (Version 3)
Quarter: 2014Q4

REPORT INFORMATION
  Report Type: Report from Study
  Country: MX (occurrence: MX)
  Receive Date: 20140916
  Receipt Date: 20141014
  Transmission Date: 20150528
  Serious: Yes (Death, Hospitalization, Other)
  Sender: FDA-Public Use
  Company Number: PHHY2014MX119683

PATIENT
  Age: 91 Year
  Sex: Female

DRUGS (9)
  1. CO-DIOVAN [Suspect]
     Active Substance: HYDROCHLOROTHIAZIDE\VALSARTAN
     Indication: HYPERTENSION
     Dosage: 1 DF (320/25MG) DAILY
     Route: 048
     Dates: start: 201009
  2. COUMADIN [Concomitant]
     Active Substance: WARFARIN SODIUM
     Indication: ANTICOAGULANT THERAPY
     Dosage: 0.75 UKN, QD AT NIGHT
     Dates: start: 201209
  3. DAGLA [Concomitant]
     Indication: GASTRIC DISORDER
     Dosage: 3 UKN, DAILY
     Dates: start: 201405
  4. TAFIL [Concomitant]
     Active Substance: ALPRAZOLAM
     Indication: SLEEP DISORDER
     Dosage: 0.5 UKN, DAILY
     Dates: start: 200609
  5. CO-DIOVAN [Suspect]
     Active Substance: HYDROCHLOROTHIAZIDE\VALSARTAN
     Dosage: 0.5 DF (320/25MG), UKN
     Route: 048
  6. ALEVIAN DUO                        /06593801/ [Concomitant]
     Indication: ABDOMINAL DISTENSION
     Dosage: 2 UKN, DAILY
     Dates: start: 201405
  7. PROTHROMBIN [Concomitant]
     Active Substance: PROTHROMBIN
     Dosage: 1 OR 0.5 UKN, DAILY
  8. SENSIBIT [Concomitant]
     Indication: PRURITUS
     Dosage: 1 UKN, DAILY
     Dates: start: 201408
  9. NUCLEO CMP FORTE [Concomitant]
     Indication: ARTHROPATHY
     Dosage: 1 UKN, Q8H
     Dates: start: 201407

REACTIONS (10)
  - Visual impairment [Not Recovered/Not Resolved]
  - Wrong technique in drug usage process [Not Recovered/Not Resolved]
  - Hypotension [Not Recovered/Not Resolved]
  - Death [Fatal]
  - Intestinal infarction [Not Recovered/Not Resolved]
  - Malaise [Not Recovered/Not Resolved]
  - Embolism [Unknown]
  - Blood pressure systolic increased [Not Recovered/Not Resolved]
  - Blood pressure diastolic decreased [Not Recovered/Not Resolved]
  - Asthenia [Not Recovered/Not Resolved]
